FAERS Safety Report 6473837-5 (Version None)
Quarter: 2009Q4

REPORT INFORMATION
  Report Type: 
  Country: None (occurrence: None)
  Receive Date: 20091130
  Receipt Date: 20091110
  Transmission Date: 20100525
  Serious: Yes (Other)
  Sender: FDA-Public Use
  Company Number: THQ2009A04819

PATIENT
  Age: 68 Year
  Sex: Female

DRUGS (5)
  1. PIOGLITAZONE HCL [Suspect]
     Indication: DIABETES MELLITUS
     Dosage: 30 MG (30 MG,1 IN 1 D) PER ORAL ; PER ORAL
     Route: 048
     Dates: start: 20060101, end: 20091001
  2. PIOGLITAZONE HCL [Suspect]
     Indication: DIABETES MELLITUS
     Dosage: 30 MG (30 MG,1 IN 1 D) PER ORAL ; PER ORAL
     Route: 048
     Dates: start: 20091101
  3. FORTEO [Suspect]
     Indication: OSTEOPOROSIS
     Dosage: 20 MCG (20 MCG,1 IN 1 D)
     Dates: start: 20090801
  4. FORTEO PEN (TERIPARATIDE) [Concomitant]
  5. VICTAN (ETHYL LOFLAZEPATE) [Concomitant]

REACTIONS (6)
  - ARTHRALGIA [None]
  - BLOOD GLUCOSE INCREASED [None]
  - GLAUCOMA [None]
  - HEADACHE [None]
  - HYPOGLYCAEMIA [None]
  - SENSATION OF HEAVINESS [None]
